FAERS Safety Report 18432318 (Version 1)
Quarter: 2020Q4

REPORT INFORMATION
  Report Type: Report from Study
  Country: US (occurrence: US)
  Receive Date: 20201027
  Receipt Date: 20201027
  Transmission Date: 20210114
  Serious: Yes (Other)
  Sender: FDA-Public Use
  Company Number: US-BRISTOL-MYERS SQUIBB COMPANY-BMS-2020-087758

PATIENT
  Sex: Male

DRUGS (1)
  1. APIXABAN [Suspect]
     Active Substance: APIXABAN
     Indication: PRODUCT USED FOR UNKNOWN INDICATION
     Dosage: UNK
     Route: 065

REACTIONS (8)
  - Arthropathy [Unknown]
  - Skin ulcer [Unknown]
  - Blister [Unknown]
  - Intentional product misuse [Unknown]
  - Vein rupture [Unknown]
  - Peripheral swelling [Unknown]
  - Cardiac valve disease [Unknown]
  - Cardiac disorder [Unknown]
